FAERS Safety Report 6622026-X (Version None)
Quarter: 2010Q1

REPORT INFORMATION
  Report Type: 
  Country: None (occurrence: None)
  Receive Date: 20100304
  Receipt Date: 20100220
  Transmission Date: 20100710
  Serious: Yes (Death)
  Sender: FDA-Public Use
  Company Number: B0636359A

PATIENT
  Sex: Male

DRUGS (2)
  1. MELPHALAN INJECTION (MELPHALAN) (GENERIC) [Suspect]
     Indication: GAUCHER'S DISEASE
     Dosage: 20 MG / PER DAY / INTRAVENOUS
     Route: 042
  2. PREDNISONE TAB [Concomitant]

REACTIONS (2)
  - ACUTE MYELOID LEUKAEMIA [None]
  - MYELODYSPLASTIC SYNDROME [None]
